FAERS Safety Report 8143810-X (Version None)
Quarter: 2012Q1

REPORT INFORMATION
  Report Type: 
  Country: None (occurrence: None)
  Receive Date: 20120217
  Receipt Date: 20120207
  Transmission Date: 20120608
  Serious: Yes (Hospitalization, Other)
  Sender: FDA-Public Use
  Company Number: CA-JNJFOC-20120205646

PATIENT
  Sex: Female
  Weight: 86.18 kg

DRUGS (6)
  1. REMICADE [Suspect]
     Route: 042
     Dates: start: 20111221
  2. CIPRALEX [Concomitant]
     Route: 065
  3. ATIVAN [Concomitant]
     Route: 065
  4. METHOTREXATE [Concomitant]
     Route: 065
  5. REMICADE [Suspect]
     Indication: ANKYLOSING SPONDYLITIS
     Route: 042
  6. REMICADE [Suspect]
     Route: 042

REACTIONS (5)
  - INFECTION [None]
  - DISCOMFORT [None]
  - NEPHROLITHIASIS [None]
  - FISTULA [None]
  - COLITIS [None]
